FAERS Safety Report 7460105-8 (Version None)
Quarter: 2011Q2

REPORT INFORMATION
  Report Type: 
  Country: None (occurrence: None)
  Receive Date: 20110505
  Receipt Date: 20110504
  Transmission Date: 20111010
  Serious: Yes (Other)
  Sender: FDA-Public Use
  Company Number: US-ABBOTT-11P-163-0708112-00

PATIENT
  Age: 36 Year
  Sex: Female

DRUGS (6)
  1. HIGH DOSE METHADONE [Concomitant]
     Indication: PRODUCT USED FOR UNKNOWN INDICATION
  2. KALETRA [Suspect]
     Indication: ANTIRETROVIRAL THERAPY
     Route: 048
     Dates: start: 20101119
  3. RETROVIR [Suspect]
     Indication: ANTIRETROVIRAL THERAPY
     Dosage: 2 MG/KG/HR
     Route: 042
     Dates: start: 20110208, end: 20110208
  4. RETROVIR [Suspect]
     Dosage: 1 MG/KG/HR
     Route: 042
     Dates: start: 20110208, end: 20110208
  5. COCAINE [Concomitant]
     Indication: PRODUCT USED FOR UNKNOWN INDICATION
  6. COMBIVIR [Suspect]
     Indication: ANTIRETROVIRAL THERAPY
     Dates: start: 20101119

REACTIONS (2)
  - CHORIOAMNIONITIS [None]
  - PREMATURE RUPTURE OF MEMBRANES [None]
